FAERS Safety Report 24874334 (Version 1)
Quarter: 2025Q1

REPORT INFORMATION
  Report Type: Spontaneous
  Country: US (occurrence: US)
  Receive Date: 20250122
  Receipt Date: 20250122
  Transmission Date: 20250408
  Serious: Yes (Other)
  Sender: PFIZER
  Company Number: US-PFIZER INC-PV202500008077

PATIENT
  Age: 26 Year
  Sex: Female

DRUGS (1)
  1. DEPO-PROVERA [Suspect]
     Active Substance: MEDROXYPROGESTERONE ACETATE
     Indication: Dysmenorrhoea
     Dosage: EVERY 3 MONTHS FOR THE LAST 12 YEARS
     Dates: start: 20130407

REACTIONS (10)
  - Hemiplegia [Unknown]
  - Anosmia [Not Recovered/Not Resolved]
  - Productive cough [Unknown]
  - Arthralgia [Unknown]
  - Joint range of motion decreased [Unknown]
  - Hypoaesthesia [Unknown]
  - Pain [Unknown]
  - Bone disorder [Unknown]
  - Somnolence [Unknown]
  - Off label use [Unknown]

NARRATIVE: CASE EVENT DATE: 20200101
